FAERS Safety Report 23844359 (Version 3)
Quarter: 2024Q2

REPORT INFORMATION
  Report Type: Spontaneous
  Country: US (occurrence: US)
  Receive Date: 20240510
  Receipt Date: 20240621
  Transmission Date: 20240716
  Serious: Yes (Other)
  Sender: FDA-Public Use
  Company Number: US-APELLIS PHARMACEUTICALS-APL-2024-004419

PATIENT

DRUGS (1)
  1. SYFOVRE [Suspect]
     Active Substance: PEGCETACOPLAN
     Indication: Dry age-related macular degeneration
     Dosage: UNK, OS
     Route: 031
     Dates: start: 202304

REACTIONS (3)
  - Neovascular age-related macular degeneration [Unknown]
  - Eye haemorrhage [Unknown]
  - Choroidal neovascularisation [Not Recovered/Not Resolved]
